FAERS Safety Report 7015174 (Version 10)
Quarter: 2020Q3

REPORT INFORMATION
  Report Type: Report from Study
  Country: US (occurrence: US)
  Receive Date: 20090609
  Receipt Date: 20101005
  Transmission Date: 20201105
  Serious: Yes (Hospitalization, Disabling)
  Sender: FDA-Public Use
  Company Number: US-JNJFOC-20090600303

PATIENT
  Age: 43 Year
  Sex: Male
  Weight: 64 kg

DRUGS (48)
  1. GOLIMUMAB [Suspect]
     Active Substance: GOLIMUMAB
     Route: 058
  2. GOLIMUMAB [Suspect]
     Active Substance: GOLIMUMAB
     Route: 058
  3. GOLIMUMAB [Suspect]
     Active Substance: GOLIMUMAB
     Route: 058
  4. GOLIMUMAB [Suspect]
     Active Substance: GOLIMUMAB
     Route: 058
  5. GOLIMUMAB [Suspect]
     Active Substance: GOLIMUMAB
     Route: 058
  6. GOLIMUMAB [Suspect]
     Active Substance: GOLIMUMAB
     Route: 058
  7. GOLIMUMAB [Suspect]
     Active Substance: GOLIMUMAB
     Route: 058
  8. GOLIMUMAB [Suspect]
     Active Substance: GOLIMUMAB
     Route: 058
  9. GOLIMUMAB [Suspect]
     Active Substance: GOLIMUMAB
     Route: 058
  10. GOLIMUMAB [Suspect]
     Active Substance: GOLIMUMAB
     Route: 058
  11. GOLIMUMAB [Suspect]
     Active Substance: GOLIMUMAB
     Route: 058
  12. GOLIMUMAB [Suspect]
     Active Substance: GOLIMUMAB
     Indication: ANKYLOSING SPONDYLITIS
     Route: 058
  13. GOLIMUMAB [Suspect]
     Active Substance: GOLIMUMAB
     Route: 058
  14. GOLIMUMAB [Suspect]
     Active Substance: GOLIMUMAB
     Route: 058
  15. GOLIMUMAB [Suspect]
     Active Substance: GOLIMUMAB
     Route: 058
  16. GOLIMUMAB [Suspect]
     Active Substance: GOLIMUMAB
     Route: 058
  17. ADVIL [Concomitant]
     Active Substance: IBUPROFEN
     Route: 048
  18. TYLENOL [Concomitant]
     Active Substance: ACETAMINOPHEN
     Route: 048
  19. GOLIMUMAB [Suspect]
     Active Substance: GOLIMUMAB
     Route: 058
  20. GOLIMUMAB [Suspect]
     Active Substance: GOLIMUMAB
     Route: 058
  21. GOLIMUMAB [Suspect]
     Active Substance: GOLIMUMAB
     Route: 058
  22. ATENOLOL WITH HYDROCHLOROTHIAZIDE [Concomitant]
     Route: 048
  23. GOLIMUMAB [Suspect]
     Active Substance: GOLIMUMAB
     Route: 058
  24. GOLIMUMAB [Suspect]
     Active Substance: GOLIMUMAB
     Route: 058
  25. GOLIMUMAB [Suspect]
     Active Substance: GOLIMUMAB
     Route: 058
  26. GOLIMUMAB [Suspect]
     Active Substance: GOLIMUMAB
     Route: 058
  27. GOLIMUMAB [Suspect]
     Active Substance: GOLIMUMAB
     Route: 058
  28. GOLIMUMAB [Suspect]
     Active Substance: GOLIMUMAB
     Route: 058
  29. GOLIMUMAB [Suspect]
     Active Substance: GOLIMUMAB
     Route: 058
  30. VIOXX [Concomitant]
     Active Substance: ROFECOXIB
     Route: 048
  31. HYDROCORTISONE. [Concomitant]
     Active Substance: HYDROCORTISONE
     Route: 061
  32. ALEVE [Concomitant]
     Active Substance: NAPROXEN SODIUM
     Route: 048
  33. GOLIMUMAB [Suspect]
     Active Substance: GOLIMUMAB
     Route: 058
  34. GOLIMUMAB [Suspect]
     Active Substance: GOLIMUMAB
     Route: 058
  35. GOLIMUMAB [Suspect]
     Active Substance: GOLIMUMAB
     Route: 058
  36. GOLIMUMAB [Suspect]
     Active Substance: GOLIMUMAB
     Route: 058
  37. GOLIMUMAB [Suspect]
     Active Substance: GOLIMUMAB
     Route: 058
  38. GOLIMUMAB [Suspect]
     Active Substance: GOLIMUMAB
     Route: 058
  39. GOLIMUMAB [Suspect]
     Active Substance: GOLIMUMAB
     Route: 058
  40. GOLIMUMAB [Suspect]
     Active Substance: GOLIMUMAB
     Route: 058
  41. GOLIMUMAB [Suspect]
     Active Substance: GOLIMUMAB
     Route: 058
  42. GOLIMUMAB [Suspect]
     Active Substance: GOLIMUMAB
     Route: 058
  43. GOLIMUMAB [Suspect]
     Active Substance: GOLIMUMAB
     Route: 058
  44. GOLIMUMAB [Suspect]
     Active Substance: GOLIMUMAB
     Route: 058
  45. GOLIMUMAB [Suspect]
     Active Substance: GOLIMUMAB
     Route: 058
  46. GOLIMUMAB [Suspect]
     Active Substance: GOLIMUMAB
     Route: 058
  47. GOLIMUMAB [Suspect]
     Active Substance: GOLIMUMAB
     Route: 058
  48. CELEBREX [Concomitant]
     Active Substance: CELECOXIB
     Route: 048

REACTIONS (2)
  - Device related infection [Recovered/Resolved]
  - Arthralgia [Not Recovered/Not Resolved]

NARRATIVE: CASE EVENT DATE: 20090125
